FAERS Safety Report 8728649 (Version 2)
Quarter: 2013Q1

REPORT INFORMATION
  Report Type: Spontaneous
  Country: BR (occurrence: BR)
  Receive Date: 20120817
  Receipt Date: 20130111
  Transmission Date: 20140127
  Serious: Yes (Death, Hospitalization, Other)
  Sender: FDA-Public Use
  Company Number: PHHY2012BR070464

PATIENT
  Sex: Male

DRUGS (5)
  1. FORASEQ [Suspect]
     Indication: CHRONIC OBSTRUCTIVE PULMONARY DISEASE
     Dosage: UNK UKN, BID,2 YEARS AGO
  2. BEROTEC [Concomitant]
     Indication: RESPIRATORY DISORDER
     Dosage: 2 DRP, 4 TIMES DAILY
     Dates: start: 201205
  3. ATROVENT [Concomitant]
     Indication: RESPIRATORY DISORDER
     Dosage: 25 DRP, 4 TIMES DAILY
     Dates: start: 201205
  4. RENITEC                                 /NET/ [Concomitant]
     Indication: CARDIAC DISORDER
     Dosage: 1 DF,DAILY,10 YEARS AGO
     Route: 048
  5. INDAPEN                                 /TUR/ [Concomitant]
     Indication: CARDIAC DISORDER
     Dosage: 1 DF, DAILY, 10 YEARS AGO
     Route: 048

REACTIONS (5)
  - Fall [Fatal]
  - Femur fracture [Fatal]
  - Chronic obstructive pulmonary disease [Fatal]
  - Pneumonia [Fatal]
  - Dementia Alzheimer^s type [Unknown]
